FAERS Safety Report 26053873 (Version 1)
Quarter: 2025Q4

REPORT INFORMATION
  Report Type: Spontaneous
  Country: US (occurrence: US)
  Receive Date: 20251117
  Receipt Date: 20251117
  Transmission Date: 20260117
  Serious: No
  Sender: MYLAN
  Company Number: US-MYLANLABS-2025M1095443

PATIENT
  Age: 85 Year
  Sex: Female
  Weight: 61.23 kg

DRUGS (4)
  1. CANDESARTAN CILEXETIL [Suspect]
     Active Substance: CANDESARTAN CILEXETIL
     Indication: Hypertension
     Dosage: 16 MILLIGRAM, QD (1 TABLET DAILY, ANYTIME DURING THE DAY)
     Dates: start: 20251105
  2. CANDESARTAN CILEXETIL [Suspect]
     Active Substance: CANDESARTAN CILEXETIL
     Dosage: 16 MILLIGRAM, QD (1 TABLET DAILY, ANYTIME DURING THE DAY)
     Route: 065
     Dates: start: 20251105
  3. CANDESARTAN CILEXETIL [Suspect]
     Active Substance: CANDESARTAN CILEXETIL
     Dosage: 16 MILLIGRAM, QD (1 TABLET DAILY, ANYTIME DURING THE DAY)
     Route: 065
     Dates: start: 20251105
  4. CANDESARTAN CILEXETIL [Suspect]
     Active Substance: CANDESARTAN CILEXETIL
     Dosage: 16 MILLIGRAM, QD (1 TABLET DAILY, ANYTIME DURING THE DAY)
     Dates: start: 20251105

REACTIONS (1)
  - Drug ineffective [Unknown]

NARRATIVE: CASE EVENT DATE: 20251106
